FAERS Safety Report 15748459 (Version 1)
Quarter: 2018Q4

REPORT INFORMATION
  Report Type: Spontaneous
  Country: US (occurrence: US)
  Receive Date: 20181221
  Receipt Date: 20181221
  Transmission Date: 20190205
  Serious: No
  Sender: FDA-Public Use
  Company Number: US-DRREDDYS-USA/USA/18/0102540

PATIENT
  Age: 91 Month
  Sex: Male

DRUGS (3)
  1. GUANFACINE. [Concomitant]
     Active Substance: GUANFACINE
     Indication: PSYCHOMOTOR HYPERACTIVITY
     Dosage: DOSE WAS GRADUALLY INCREASED TO 1.25 MG IN THE MORNING
     Route: 065
  2. RISPERIDONE TABLETS 0.5 MG [Suspect]
     Active Substance: RISPERIDONE
     Indication: PERSEVERATION
     Route: 065
  3. GUANFACINE. [Concomitant]
     Active Substance: GUANFACINE
     Dosage: DOSE WAS GRADUALLY INCREASED TO 1.25 MG IN THE MORNING

REACTIONS (1)
  - Weight increased [Unknown]
